FAERS Safety Report 7151249-9 (Version None)
Quarter: 2010Q4

REPORT INFORMATION
  Report Type: 
  Country: None (occurrence: None)
  Receive Date: 20101210
  Receipt Date: 20101130
  Transmission Date: 20110411
  Serious: Yes (Other)
  Sender: FDA-Public Use
  Company Number: PL-JNJFOC-20101203267

PATIENT
  Age: 33 Year
  Sex: Male

DRUGS (9)
  1. DOXORUBICIN HYDROCHLORIDE [Suspect]
     Indication: DIFFUSE LARGE B-CELL LYMPHOMA
     Dosage: 5 CYCLES OF CHEMOTHERAPY TREATMENT
     Route: 042
  2. CYCLOPHOSPHAMIDE [Suspect]
     Indication: DIFFUSE LARGE B-CELL LYMPHOMA
     Dosage: 5 CYCLES OF CHEMOTHERAPY TREATMENT
     Route: 065
  3. VINCRISTINE [Suspect]
     Indication: DIFFUSE LARGE B-CELL LYMPHOMA
     Dosage: 5 CYCLES OF CHEMOTHERAPY TREATMENT
     Route: 065
  4. PREDNISONE [Suspect]
     Indication: DIFFUSE LARGE B-CELL LYMPHOMA
     Dosage: 5 CYCLES OF CHEMOTHERAPY TREATMENT
     Route: 065
  5. RITUXIMAB [Concomitant]
     Indication: DIFFUSE LARGE B-CELL LYMPHOMA
     Route: 065
  6. TENOFOVIR DISOPROXIL FUMARATE [Concomitant]
     Indication: ANTIVIRAL TREATMENT
     Route: 065
  7. LAMIVUDINE [Concomitant]
     Indication: ANTIVIRAL TREATMENT
     Route: 065
  8. LOPINAVIR [Concomitant]
     Indication: ANTIVIRAL TREATMENT
     Route: 065
  9. RITONAVIR [Concomitant]
     Indication: ANTIVIRAL TREATMENT
     Route: 065

REACTIONS (5)
  - ASTHENIA [None]
  - BONE MARROW FAILURE [None]
  - DIARRHOEA [None]
  - SKIN ULCER [None]
  - STOMATITIS [None]
